FAERS Safety Report 10410394 (Version 2)
Quarter: 2014Q3

REPORT INFORMATION
  Report Type: Spontaneous
  Country: US (occurrence: US)
  Receive Date: 20140826
  Receipt Date: 20140826
  Transmission Date: 20150326
  Serious: Yes (Hospitalization)
  Sender: FDA-Public Use
  Company Number: US-GLAXOSMITHKLINE-A0804389A

PATIENT
  Sex: Male

DRUGS (1)
  1. AVANDIA [Suspect]
     Active Substance: ROSIGLITAZONE MALEATE
     Indication: DIABETES MELLITUS
     Dosage: 8MG PER DAY
     Route: 048
     Dates: start: 20010308, end: 20010629

REACTIONS (4)
  - Myocardial infarction [Unknown]
  - Arteriosclerosis coronary artery [Unknown]
  - Ischaemic cardiomyopathy [Unknown]
  - Left ventricular hypertrophy [Unknown]
